FAERS Safety Report 8041625-4 (Version None)
Quarter: 2012Q1

REPORT INFORMATION
  Report Type: 
  Country: None (occurrence: None)
  Receive Date: 20120112
  Receipt Date: 20120105
  Transmission Date: 20120608
  Serious: Yes (Life-Threatening)
  Sender: FDA-Public Use
  Company Number: GB-TEVA-316533ISR

PATIENT
  Age: 59 Year
  Sex: Female
  Weight: 104.78 kg

DRUGS (23)
  1. EPIPEN [Concomitant]
     Dates: start: 20110927, end: 20110928
  2. ERYTHROMYCIN [Concomitant]
     Dates: start: 20111014
  3. ESTRADIOL VALERATE [Concomitant]
     Dates: start: 20110706, end: 20110928
  4. ACETAMINOPHEN AND CODEINE PHOSPHATE [Concomitant]
     Dates: start: 20110705
  5. ESTRADIOL VALERATE [Concomitant]
     Dates: start: 20111011
  6. FUCIDINE CAP [Concomitant]
     Dates: start: 20111014
  7. OMEPRAZOLE [Concomitant]
     Dates: start: 20110705
  8. FLUOXETINE [Concomitant]
     Dates: start: 20110705
  9. THEOPHYLLINE [Concomitant]
     Dates: start: 20111011
  10. NICOTINE [Concomitant]
     Dates: start: 20110928, end: 20111012
  11. AMLODIPINE [Concomitant]
     Dates: start: 20111012
  12. PREDNISOLONE [Suspect]
     Dates: start: 20110816, end: 20110826
  13. FUROSEMIDE [Concomitant]
     Dates: start: 20110705
  14. TIOPRONIN [Concomitant]
     Dates: start: 20110705
  15. LISINOPRIL [Interacting]
     Dates: start: 20101101
  16. AMOXICILLIN [Interacting]
     Dates: start: 20110816, end: 20110821
  17. FLUTICASONE FUROATE [Concomitant]
     Dates: start: 20110705
  18. FLUCONAZOLE [Concomitant]
     Dates: start: 20110816
  19. CETIRIZINE [Concomitant]
     Dates: start: 20110705
  20. BENDROFLUMETHIAZIDE [Concomitant]
     Dates: start: 20110705, end: 20110823
  21. EPIPEN [Concomitant]
     Dates: start: 20111011, end: 20111012
  22. NICOTINE [Concomitant]
     Dates: start: 20110927, end: 20111004
  23. VENTOLIN [Concomitant]
     Dates: start: 20111011

REACTIONS (2)
  - ANAPHYLACTIC REACTION [None]
  - DRUG INTERACTION [None]
